FAERS Safety Report 25191073 (Version 2)
Quarter: 2025Q2

REPORT INFORMATION
  Report Type: Report from Study
  Country: CA (occurrence: CA)
  Receive Date: 20250411
  Receipt Date: 20250502
  Transmission Date: 20250717
  Serious: Yes (Hospitalization, Other)
  Sender: IPSEN BIOPHARMACEUTICALS, INC.
  Company Number: CA-IPSEN Group, Research and Development-2025-04929

PATIENT
  Age: 71 Year
  Sex: Male

DRUGS (24)
  1. LANREOTIDE ACETATE [Suspect]
     Active Substance: LANREOTIDE ACETATE
     Indication: Gastroenteropancreatic neuroendocrine tumour disease
     Dosage: DEEP SUBCUTANEOUS
     Route: 058
     Dates: start: 20160503
  2. LANREOTIDE ACETATE [Suspect]
     Active Substance: LANREOTIDE ACETATE
     Indication: Carcinoid syndrome
  3. CREON [Concomitant]
     Active Substance: PANCRELIPASE AMYLASE\PANCRELIPASE LIPASE\PANCRELIPASE PROTEASE
     Dosage: 3 CAPSULES BY MOUTH 3 TIMES DAILY WITH MEALS
     Route: 048
  4. TWYNSTA [Concomitant]
     Active Substance: AMLODIPINE BESYLATE\TELMISARTAN
     Dosage: 80MG/10MG OD
     Dates: end: 20250131
  5. HYDROCHLOROTHIAZIDE [Concomitant]
     Active Substance: HYDROCHLOROTHIAZIDE
     Dosage: 12.5MG OD
  6. SENNOSIDES [Concomitant]
     Active Substance: SENNOSIDES
     Dosage: 8.6MG 2 TABS OD PRN
  7. LORAZEPAM [Concomitant]
     Active Substance: LORAZEPAM
     Dosage: 1MG BID PRN
  8. HYDROMORPHONE HCL CR [Concomitant]
     Dosage: HYDROMORPHONE HCL CR 6 MG BID PRN
  9. HYDROMORPHONE HCL CR [Concomitant]
     Dosage: 1 MG BID PRN
  10. ROSUVASTATIN [Concomitant]
     Active Substance: ROSUVASTATIN
     Dosage: 10MG OD
  11. ROSUVASTATIN [Concomitant]
     Active Substance: ROSUVASTATIN
     Dosage: 40MG DAILY BY MOUTH
     Route: 048
  12. INSULIN GLARGINE [Concomitant]
     Active Substance: INSULIN GLARGINE
     Dosage: 40 UNITS OD
  13. INSULIN GLULISINE [Concomitant]
     Active Substance: INSULIN GLULISINE
     Dosage: 5 UNITS OD WITH LARGEST MEAL OF THE DAY
  14. JANUMET [Concomitant]
     Active Substance: METFORMIN HYDROCHLORIDE\SITAGLIPTIN PHOSPHATE
     Dosage: 50/1000MG BID
  15. IRBESARTAN/HCT [Concomitant]
     Dosage: 300/12.5MG OD
  16. BISOPROLOL [Concomitant]
     Active Substance: BISOPROLOL
     Dosage: 1.25 MG BY MOUTH ONCE A DAY
     Route: 048
  17. JARDIANCE [Concomitant]
     Active Substance: EMPAGLIFLOZIN
     Dosage: 10 MG BY MOUTH ONCE A DAY
     Route: 048
  18. DEXTROSE [Concomitant]
     Active Substance: DEXTROSE MONOHYDRATE
  19. APIDRA SOLOSTAR [Concomitant]
     Active Substance: INSULIN GLULISINE
     Dosage: 3 TIMES SUBQ PER SLIDING SCALE
     Route: 058
  20. LINAGLIPTIN [Concomitant]
     Active Substance: LINAGLIPTIN
     Dosage: 5 MG ONCE DAILY BY MOUTH
     Route: 048
  21. NITROGLYCERIN [Concomitant]
     Active Substance: NITROGLYCERIN
     Indication: Chest pain
  22. ASPIRIN [Concomitant]
     Active Substance: ASPIRIN
     Dosage: 81 MG DAILY BY MOUTH
     Route: 048
  23. PLAVIX [Concomitant]
     Active Substance: CLOPIDOGREL BISULFATE
     Dosage: 75MG DAILY BY MOUTH
     Route: 048
  24. TOUJEO [Concomitant]
     Active Substance: INSULIN GLARGINE
     Dosage: 10 UNITS SUBQ DAILY AT BEDTIME
     Route: 058

REACTIONS (8)
  - Myocardial infarction [Recovering/Resolving]
  - Syncope [Recovered/Resolved]
  - Renal impairment [Not Recovered/Not Resolved]
  - Amnesia [Not Recovered/Not Resolved]
  - Fatigue [Not Recovered/Not Resolved]
  - Weight decreased [Not Recovered/Not Resolved]
  - Urinary tract infection [Recovered/Resolved]
  - Heart rate decreased [Not Recovered/Not Resolved]

NARRATIVE: CASE EVENT DATE: 20250213
